FAERS Safety Report 11134536 (Version 1)
Quarter: 2015Q2

REPORT INFORMATION
  Report Type: Report from Study
  Country: US (occurrence: US)
  Receive Date: 20150525
  Receipt Date: 20150525
  Transmission Date: 20150821
  Serious: No
  Sender: FDA-Public Use
  Company Number: US-AMGEN-USASL2015049649

PATIENT
  Age: 14 Year
  Sex: Female

DRUGS (1)
  1. ENBREL [Suspect]
     Active Substance: ETANERCEPT
     Indication: JUVENILE IDIOPATHIC ARTHRITIS
     Dosage: 0.7 UNK, QWK
     Route: 065
     Dates: start: 20050101, end: 201502

REACTIONS (2)
  - Gait disturbance [Recovered/Resolved]
  - Condition aggravated [Recovered/Resolved]
